FAERS Safety Report 15644034 (Version 3)
Quarter: 2018Q4

REPORT INFORMATION
  Report Type: Spontaneous
  Country: US (occurrence: US)
  Receive Date: 20181121
  Receipt Date: 20181128
  Transmission Date: 20190205
  Serious: Yes (Other)
  Sender: FDA-Public Use
  Company Number: US-PFIZER INC-2018473831

PATIENT
  Sex: Female

DRUGS (1)
  1. ZYVOX [Suspect]
     Active Substance: LINEZOLID
     Dosage: UNK, 2X/DAY
     Route: 042

REACTIONS (7)
  - Anaemia [Unknown]
  - Acute respiratory distress syndrome [Unknown]
  - Hypopnoea [Unknown]
  - Faeces discoloured [Unknown]
  - Dyspnoea [Unknown]
  - Haemorrhage [Unknown]
  - Diarrhoea [Unknown]
